FAERS Safety Report 15075320 (Version 1)
Quarter: 2018Q2

REPORT INFORMATION
  Report Type: Report from Study
  Country: US (occurrence: US)
  Receive Date: 20180627
  Receipt Date: 20180627
  Transmission Date: 20180711
  Serious: Yes (Hospitalization)
  Sender: FDA-Public Use
  Company Number: US-SAOL THERAPEUTICS-2018SAO00144

PATIENT
  Age: 51 Year
  Sex: Male
  Weight: 99.77 kg

DRUGS (2)
  1. HYDROMORPHONE [Suspect]
     Active Substance: HYDROMORPHONE
     Dosage: 9.498 MG, \DAY
     Route: 037
     Dates: start: 20170901
  2. BACLOFEN. [Suspect]
     Active Substance: BACLOFEN
     Dosage: 28.494 ?G, \DAY
     Route: 037
     Dates: start: 20170901

REACTIONS (6)
  - Fall [Unknown]
  - Contusion [None]
  - Fatigue [Unknown]
  - Drug withdrawal syndrome [Recovered/Resolved]
  - Back pain [Unknown]
  - Device failure [Unknown]

NARRATIVE: CASE EVENT DATE: 20180114
